FAERS Safety Report 16066584 (Version 2)
Quarter: 2019Q2

REPORT INFORMATION
  Report Type: Report from Study
  Country: US (occurrence: US)
  Receive Date: 20190313
  Receipt Date: 20190403
  Transmission Date: 20190711
  Serious: Yes (Hospitalization, Other)
  Sender: FDA-Public Use
  Company Number: US-PFIZER INC-2019069816

PATIENT
  Age: 64 Year
  Sex: Male

DRUGS (1)
  1. SUTENT [Suspect]
     Active Substance: SUNITINIB MALATE
     Indication: RENAL CELL CARCINOMA
     Dosage: 25 MG, CYCLIC (25 MG DAILY FOR 28 DAYS OF 42 DAY CYCLE)
     Route: 048
     Dates: start: 20190204, end: 20190220

REACTIONS (12)
  - Nausea [Unknown]
  - Dehydration [Unknown]
  - Neoplasm progression [Unknown]
  - Taste disorder [Unknown]
  - Cardiac failure congestive [Unknown]
  - Fatigue [Unknown]
  - Spondylitis [Unknown]
  - Vomiting [Unknown]
  - Pleural effusion [Unknown]
  - Acute kidney injury [Unknown]
  - Pyrexia [Unknown]
  - Abdominal pain [Unknown]
